FAERS Safety Report 10936312 (Version 1)
Quarter: 2015Q1

REPORT INFORMATION
  Report Type: Spontaneous
  Country: US (occurrence: None)
  Receive Date: 20150320
  Receipt Date: 20150320
  Transmission Date: 20150721
  Serious: Yes (Death)
  Sender: FDA-Public Use
  Company Number: None

PATIENT
  Age: 58 Year
  Sex: Male
  Weight: 77.11 kg

DRUGS (1)
  1. LOMUSTINE 10MG NEXTSOURCE BIOTECH [Suspect]
     Active Substance: LOMUSTINE
     Indication: GLIOBLASTOMA
     Dosage: Q6WEEKS
     Route: 048
     Dates: start: 20141103, end: 20141215

REACTIONS (2)
  - Glioblastoma [None]
  - Disease complication [None]

NARRATIVE: CASE EVENT DATE: 20141215
